FAERS Safety Report 5325076-9 (Version None)
Quarter: 2007Q2

REPORT INFORMATION
  Report Type: 
  Country: None (occurrence: None)
  Receive Date: 20070511
  Receipt Date: 20070511
  Transmission Date: 20071010
  Serious: Yes (Hospitalization)
  Sender: FDA-Public Use
  Company Number: None

PATIENT
  Age: 68 Year
  Sex: Male

DRUGS (20)
  1. CAMPATH [Suspect]
     Indication: CHEMOTHERAPY
     Dosage: 30MG INJECTION 4 DOSES IN 14D
     Dates: start: 20061218, end: 20061228
  2. DOXORUBICIN HCL [Suspect]
     Indication: CHEMOTHERAPY
     Dosage: 50MG IV
     Route: 042
     Dates: start: 20061227, end: 20061227
  3. ACETAMINOPHEN [Concomitant]
  4. CAMPATH [Concomitant]
  5. SINEMET [Concomitant]
  6. BENADRYL [Concomitant]
  7. LASIX [Concomitant]
  8. LISINOPRIL [Concomitant]
  9. MRITAZAPINE [Concomitant]
  10. FEGFILGRASTIM [Concomitant]
  11. PROCHLOROPERAZINE [Concomitant]
  12. SODIUM POLYSTYRENE [Concomitant]
  13. BACTRIM [Concomitant]
  14. VALACYCLOVIR [Concomitant]
  15. THIAMINE [Concomitant]
  16. SIMVASTATIN [Concomitant]
  17. GLYBURIDE [Concomitant]
  18. FOLIC ACID [Concomitant]
  19. COUMADIN [Concomitant]
  20. RANITIDINE [Concomitant]

REACTIONS (1)
  - ANAEMIA [None]
